FAERS Safety Report 5086830-4 (Version None)
Quarter: 2006Q3

REPORT INFORMATION
  Report Type: 
  Country: None (occurrence: None)
  Receive Date: 20060823
  Receipt Date: 20060817
  Transmission Date: 20061208
  Serious: Yes (Life-Threatening)
  Sender: FDA-Public Use
  Company Number: DE-BOEHRINGER INGELHEIM PHARMACEUTICALS, INC.-2006-DE-04335BY

PATIENT
  Sex: Male

DRUGS (7)
  1. KINZALMONO [Suspect]
     Dates: start: 20050609
  2. ALLOPURINOL [Concomitant]
     Dates: start: 20030201
  3. METOPROLOL TARTRATE [Concomitant]
     Dates: start: 20050101
  4. SIMVASTATIN [Concomitant]
     Dates: start: 20050101
  5. METFORMIN [Concomitant]
     Dates: start: 20030501
  6. SPIRIVA [Concomitant]
     Dates: start: 20050501
  7. SYMBICORT [Concomitant]
     Dates: start: 20050501

REACTIONS (2)
  - BRONCHIAL CARCINOMA [None]
  - NEOPLASM PROGRESSION [None]
